FAERS Safety Report 9230268 (Version 1)
Quarter: 2013Q2

REPORT INFORMATION
  Report Type: Spontaneous
  Country: US (occurrence: None)
  Receive Date: 20130411
  Receipt Date: 20130411
  Transmission Date: 20140414
  Serious: Yes (Other)
  Sender: FDA-Public Use
  Company Number: CA13-0156

PATIENT
  Age: 69 Year
  Sex: Male
  Weight: 89.3 kg

DRUGS (7)
  1. ENOXAPARIN SODIUM [Suspect]
     Indication: PULMONARY EMBOLISM
     Dates: start: 20130116, end: 20130220
  2. ENOXAPARIN SODIUM [Suspect]
     Indication: PULMONARY EMBOLISM
     Route: 058
     Dates: start: 20130116, end: 20130224
  3. LOVENOX (ENOXAPARIN SODIUM) [Suspect]
     Dates: start: 20130120, end: 20130220
  4. SENNA-S (DOCUSATE SODIUM/SENNA ALEXANDRINA) [Concomitant]
  5. PROCHLORPERAZINE [Concomitant]
  6. ONDANSETRON [Concomitant]
  7. TIOTROPIUM [Concomitant]

REACTIONS (1)
  - Pulmonary embolism [None]
